FAERS Safety Report 16406518 (Version 1)
Quarter: 2019Q2

REPORT INFORMATION
  Report Type: Spontaneous
  Country: MX (occurrence: MX)
  Receive Date: 20190607
  Receipt Date: 20190607
  Transmission Date: 20190711
  Serious: Yes (Hospitalization, Other)
  Sender: FDA-Public Use
  Company Number: MX-GUERBET-MX-20190016

PATIENT
  Age: 19 Year
  Sex: Male
  Weight: 67 kg

DRUGS (1)
  1. DOTAREM [Suspect]
     Active Substance: GADOTERATE MEGLUMINE
     Indication: NUCLEAR MAGNETIC RESONANCE IMAGING BRAIN
     Route: 065
     Dates: start: 20190525, end: 20190525

REACTIONS (6)
  - Paraesthesia [Recovered/Resolved]
  - Vomiting [Recovered/Resolved]
  - Generalised tonic-clonic seizure [Recovered/Resolved]
  - Urinary incontinence [Recovered/Resolved]
  - Depressed level of consciousness [Recovered/Resolved]
  - Hypotension [Recovered/Resolved]

NARRATIVE: CASE EVENT DATE: 20190525
